FAERS Safety Report 23740427 (Version 1)
Quarter: 2024Q2

REPORT INFORMATION
  Report Type: Spontaneous
  Country: FR (occurrence: FR)
  Receive Date: 20240415
  Receipt Date: 20240415
  Transmission Date: 20240716
  Serious: Yes (Hospitalization, Other)
  Sender: FDA-Public Use
  Company Number: FR-CELLTRION INC.-2024FR008431

PATIENT

DRUGS (5)
  1. TRUXIMA [Suspect]
     Active Substance: RITUXIMAB-ABBS
     Indication: Diffuse vasculitis
     Dosage: 830 MILLIGRAM, 1 TOTAL
     Route: 042
     Dates: start: 20210309, end: 20210309
  2. AMLODIPINE BESYLATE [Concomitant]
     Active Substance: AMLODIPINE BESYLATE
  3. BACTRIM [Concomitant]
     Active Substance: SULFAMETHOXAZOLE\TRIMETHOPRIM
  4. ESOMEPRAZOLE MAGNESIUM [Concomitant]
     Active Substance: ESOMEPRAZOLE MAGNESIUM
  5. PREDNISONE [Concomitant]
     Active Substance: PREDNISONE

REACTIONS (4)
  - Hepatitis [Recovering/Resolving]
  - Angioedema [Recovering/Resolving]
  - Arthralgia [Recovering/Resolving]
  - Overdose [Unknown]

NARRATIVE: CASE EVENT DATE: 20210310
